FAERS Safety Report 5110328-8 (Version None)
Quarter: 2006Q3

REPORT INFORMATION
  Report Type: 
  Country: None (occurrence: None)
  Receive Date: 20060915
  Receipt Date: 20060913
  Transmission Date: 20061208
  Serious: Yes (Death)
  Sender: FDA-Public Use
  Company Number: GBWYE832301SEP06

PATIENT
  Sex: 0

DRUGS (2)
  1. TYGACIL [Suspect]
     Dates: start: 20060101
  2. ANTIBIOTICS (ANTIBIOTICS, , 0) [Suspect]

REACTIONS (2)
  - CONDITION AGGRAVATED [None]
  - DRUG INEFFECTIVE [None]
